FAERS Safety Report 4568200-8 (Version None)
Quarter: 2005Q1

REPORT INFORMATION
  Report Type: 
  Country: None (occurrence: None)
  Receive Date: 20050131
  Receipt Date: 20040616
  Transmission Date: 20050727
  Serious: Yes (Hospitalization)
  Sender: FDA-Public Use
  Company Number: MSTR-NO-0202C-0003

PATIENT
  Age: 78 Year
  Sex: Male
  Weight: 60 kg

DRUGS (14)
  1. METASTRON [Suspect]
     Indication: METASTATIC PAIN
     Dosage: 119 MBQ, SINGLE DOSE, I.V.
     Route: 042
     Dates: start: 20020215, end: 20020215
  2. INDOMETHACIN [Concomitant]
  3. POSTERISAN [Concomitant]
  4. RANITIDINE HYDROCHLORIDE [Concomitant]
  5. BICALUTAMIDE [Concomitant]
  6. DICLOFENAC SODIUM [Concomitant]
  7. CLEMASTINE FUMARATE [Concomitant]
  8. BROTIZOLAM [Concomitant]
  9. TEPRENONE [Concomitant]
  10. MAGNESIUM OXIDE [Concomitant]
  11. LANSOPRAZOLE [Concomitant]
  12. REBAMIPIDE [Concomitant]
  13. SODIUM ALGINATE [Concomitant]
  14. OXETHAZINE [Concomitant]

REACTIONS (11)
  - ANOREXIA [None]
  - BACK PAIN [None]
  - DUODENAL ULCER [None]
  - GASTRITIS [None]
  - HYPOCHLORAEMIA [None]
  - HYPOKALAEMIA [None]
  - HYPONATRAEMIA [None]
  - MALAISE [None]
  - ORAL INTAKE REDUCED [None]
  - URINE OUTPUT DECREASED [None]
  - VOMITING [None]
